FAERS Safety Report 8481064 (Version 6)
Quarter: 2012Q4

REPORT INFORMATION
  Report Type: 
  Country: US (occurrence: US)
  Receive Date: 20120328
  Receipt Date: 20121030
  Transmission Date: 20130627
  Serious: Yes (Hospitalization, Disabling, Other)
  Sender: FDA-Public Use
  Company Number: US-MSD-1203USA03294

PATIENT

DRUGS (8)
  1. FOSAMAX [Suspect]
     Indication: OSTEOPOROSIS
     Dosage: 5 mg, qd
     Route: 048
     Dates: start: 19990511, end: 20011231
  2. FOSAMAX [Suspect]
     Indication: OSTEOPENIA
     Dosage: 10 mg, qd
     Route: 048
     Dates: start: 20000615, end: 20011213
  3. FOSAMAX [Suspect]
     Dosage: 70 mg, QW
     Route: 048
     Dates: start: 20011231, end: 20090925
  4. MK-9359 [Concomitant]
     Dosage: 12.5 mg, UNK
     Dates: start: 1997
  5. FOSAMAX D [Suspect]
     Indication: OSTEOPOROSIS
     Dosage: 70-2800
     Route: 048
     Dates: start: 20070326
  6. FOSAMAX D [Suspect]
     Indication: OSTEOPENIA
  7. ALENDRONATE SODIUM [Suspect]
     Indication: OSTEOPOROSIS
     Dosage: 70 mg, UNK
     Dates: start: 20081013
  8. ALENDRONATE SODIUM [Suspect]
     Indication: OSTEOPENIA

REACTIONS (43)
  - Hip fracture [Unknown]
  - Open reduction of fracture [Unknown]
  - Osteoporosis [Unknown]
  - Stress fracture [Unknown]
  - Femur fracture [Unknown]
  - Low turnover osteopathy [Unknown]
  - Ulna fracture [Recovered/Resolved]
  - Spinal column stenosis [Unknown]
  - Haematocrit decreased [Unknown]
  - Adenoidal disorder [Unknown]
  - Glaucoma [Unknown]
  - Adverse event [Unknown]
  - Foreign body [Unknown]
  - Vitamin D deficiency [Unknown]
  - Pancreatic cyst [Unknown]
  - Mucosal atrophy [Unknown]
  - Lipase decreased [Unknown]
  - Hypertension [Unknown]
  - Hiatus hernia [Unknown]
  - Migraine [Unknown]
  - Mitral valve prolapse [Unknown]
  - Atrial fibrillation [Unknown]
  - Rotator cuff syndrome [Unknown]
  - Carpal tunnel syndrome [Unknown]
  - Malabsorption [Unknown]
  - Urinary tract infection [Unknown]
  - Laceration [Unknown]
  - Arthritis [Unknown]
  - Pubis fracture [Unknown]
  - Scoliosis [Unknown]
  - Irritable bowel syndrome [Unknown]
  - Intervertebral disc degeneration [Unknown]
  - Intervertebral disc protrusion [Unknown]
  - Wound infection [Unknown]
  - Bursitis [Unknown]
  - Tachycardia [Unknown]
  - Lipoma [Recovered/Resolved]
  - Diarrhoea [Unknown]
  - Abdominal discomfort [Unknown]
  - Back pain [Unknown]
  - Nausea [Unknown]
  - Dyspepsia [Unknown]
  - Arthralgia [Unknown]
